FAERS Safety Report 15156096 (Version 1)
Quarter: 2018Q3

REPORT INFORMATION
  Report Type: Spontaneous
  Country: US (occurrence: US)
  Receive Date: 20180717
  Receipt Date: 20180717
  Transmission Date: 20181010
  Serious: No
  Sender: FDA-Public Use
  Company Number: US-GE HEALTHCARE LIFE SCIENCES-2018CSU001884

PATIENT
  Sex: Male

DRUGS (2)
  1. LUGOLS IODINE [Concomitant]
     Indication: PREMEDICATION
     Dosage: UNK, QD
     Route: 065
     Dates: start: 20180510, end: 20180511
  2. ADREVIEW [Suspect]
     Active Substance: IOBENGUANE I-123
     Indication: NEUROBLASTOMA
     Dosage: 370 MBQ, SINGLE
     Route: 042
     Dates: start: 20180510, end: 20180510

REACTIONS (2)
  - No adverse event [Recovered/Resolved]
  - Radioisotope scan abnormal [Recovered/Resolved]

NARRATIVE: CASE EVENT DATE: 20180511
